FAERS Safety Report 4830642-0 (Version None)
Quarter: 2005Q4

REPORT INFORMATION
  Report Type: 
  Country: None (occurrence: None)
  Receive Date: 20051117
  Receipt Date: 20050518
  Transmission Date: 20060501
  Serious: Yes (Death, Hospitalization)
  Sender: FDA-Public Use
  Company Number: US-ABBOTT-05P-163-0300774-00

PATIENT
  Sex: Male

DRUGS (33)
  1. RITONAVIR SOFT GELATIN CAPSULES [Suspect]
     Indication: HIV INFECTION
     Route: 048
     Dates: start: 20030603, end: 20050505
  2. TIPRANAVIR [Concomitant]
     Indication: HIV INFECTION
     Route: 048
     Dates: start: 20030603, end: 20050505
  3. LEVOCARNITINE [Concomitant]
     Indication: MEDICAL DIET
     Dates: start: 19991201, end: 20050502
  4. FOLTX [Concomitant]
     Indication: VITAMIN SUPPLEMENTATION
  5. RAMIPRIL [Concomitant]
     Indication: HYPERTENSION
     Dates: end: 20050502
  6. ZOCOR [Concomitant]
     Indication: BLOOD CHOLESTEROL INCREASED
  7. NICOTINIC ACID [Concomitant]
     Indication: MEDICAL DIET
     Dates: end: 20050512
  8. ASPIRIN [Concomitant]
     Indication: THROMBOSIS PROPHYLAXIS
     Dates: end: 20050512
  9. GLIPIZIDE [Concomitant]
     Indication: DIABETES MELLITUS
  10. ACTOS [Concomitant]
     Indication: DIABETES MELLITUS
     Dates: end: 20050505
  11. INSULIN HUMAN [Concomitant]
     Indication: DIABETES MELLITUS
  12. ISOPHANE INSULIN [Concomitant]
     Indication: DIABETES MELLITUS
  13. VITAMIN B COMPLEX CAP [Concomitant]
     Indication: VITAMIN SUPPLEMENTATION
     Dates: end: 20050502
  14. ASCORBIC ACID [Concomitant]
     Indication: VITAMIN SUPPLEMENTATION
     Dates: end: 20050502
  15. CALCIUM GLUCONATE [Concomitant]
     Indication: MINERAL SUPPLEMENTATION
     Dates: end: 20050502
  16. ALPHA LIPOIC ACID [Concomitant]
     Indication: MALABSORPTION
     Dates: end: 20050502
  17. BORAGE OIL [Concomitant]
     Indication: MALABSORPTION
     Dates: end: 20050502
  18. MYRTILLUS [Concomitant]
     Indication: VISUAL DISTURBANCE
     Dates: end: 20050502
  19. ZIDOVUDINE W/LAMIVUDINE [Concomitant]
     Indication: HIV INFECTION
     Dates: end: 20050505
  20. TENOFOVIR [Concomitant]
     Indication: HIV INFECTION
     Dates: end: 20050505
  21. DIDANOSINE [Concomitant]
     Indication: HIV INFECTION
     Dates: end: 20050505
  22. SPIRONOLACTONE [Concomitant]
     Indication: CARDIAC FAILURE CONGESTIVE
     Dates: start: 20040625, end: 20050512
  23. PREDNISOLONE [Concomitant]
     Indication: RESPIRATORY DISORDER
  24. LORATADINE [Concomitant]
     Indication: POSTNASAL DRIP
     Dates: start: 20030520, end: 20030624
  25. LORATADINE [Concomitant]
     Dates: start: 20030723
  26. FEXOFENADINE HYDROCHLORIDE [Concomitant]
     Indication: SEASONAL ALLERGY
     Dates: start: 20030901, end: 20050502
  27. MONOCHLORACETIC ACID [Concomitant]
     Indication: SKIN PAPILLOMA
     Dates: start: 20030812, end: 20050502
  28. UREACIN [Concomitant]
     Indication: DRY SKIN
     Dates: start: 20040309, end: 20050502
  29. DIMETICONE, ACTIVATED [Concomitant]
     Indication: ABDOMINAL DISTENSION
     Dates: start: 20040413, end: 20050502
  30. DIMETICONE, ACTIVATED [Concomitant]
     Indication: FLATULENCE
  31. CARVEDILOL [Concomitant]
     Indication: CARDIAC FAILURE CONGESTIVE
     Dates: start: 20040625, end: 20050512
  32. FUROSEMIDE [Concomitant]
     Indication: CARDIAC FAILURE CONGESTIVE
     Dates: start: 20040515, end: 20050512
  33. POTASSIUM [Concomitant]
     Indication: CARDIAC FAILURE CONGESTIVE
     Dates: start: 20040515, end: 20050512

REACTIONS (9)
  - FALL [None]
  - GALLBLADDER DISORDER [None]
  - HEPATOMEGALY [None]
  - HIP FRACTURE [None]
  - PULMONARY EMBOLISM [None]
  - PYREXIA [None]
  - RENAL FAILURE ACUTE [None]
  - RESPIRATORY DISTRESS [None]
  - RHABDOMYOLYSIS [None]
